FAERS Safety Report 24623342 (Version 1)
Quarter: 2024Q4

REPORT INFORMATION
  Report Type: Spontaneous
  Country: DE (occurrence: DE)
  Receive Date: 20241115
  Receipt Date: 20241115
  Transmission Date: 20250115
  Serious: Yes (Other)
  Sender: MACLEODS
  Company Number: DE-MLMSERVICE-20241030-PI244827-00049-3

PATIENT

DRUGS (4)
  1. ENTACAPONE [Suspect]
     Active Substance: ENTACAPONE
     Indication: Parkinson^s disease
     Dosage: 5X200 MG
     Route: 065
  2. AMITRIPTYLINE [Suspect]
     Active Substance: AMITRIPTYLINE
     Indication: Parkinson^s disease
     Dosage: 50 MG FOR NIGHT
     Route: 065
  3. LEVODOPA [Concomitant]
     Active Substance: LEVODOPA
     Dosage: 5X125 MG/D
     Route: 065
  4. RASAGILINE [Concomitant]
     Active Substance: RASAGILINE
     Route: 065

REACTIONS (1)
  - Hallucination [Recovering/Resolving]
